FAERS Safety Report 9029013 (Version 6)
Quarter: 2013Q4

REPORT INFORMATION
  Report Type: Report from Study
  Country: DE (occurrence: DE)
  Receive Date: 20130122
  Receipt Date: 20131112
  Transmission Date: 20140711
  Serious: Yes (Life-Threatening)
  Sender: FDA-Public Use
  Company Number: DE-ROCHE-1178518

PATIENT
  Age: 70 Year
  Sex: Female
  Weight: 76 kg

DRUGS (13)
  1. MABTHERA [Suspect]
     Indication: GRANULOMATOSIS WITH POLYANGIITIS
     Route: 042
     Dates: start: 20110812, end: 20120314
  2. CYCLOPHOSPHAMID [Suspect]
     Indication: GRANULOMATOSIS WITH POLYANGIITIS
     Route: 042
     Dates: start: 2004, end: 201107
  3. CYCLOPHOSPHAMID [Suspect]
     Indication: BREAST CANCER
  4. AZATHIOPRIN [Suspect]
     Indication: GRANULOMATOSIS WITH POLYANGIITIS
     Route: 048
     Dates: start: 20110916, end: 20120714
  5. EPIRUBICIN [Suspect]
     Indication: BREAST CANCER
     Route: 042
     Dates: start: 2010, end: 2010
  6. 5-FLUOROURACIL [Suspect]
     Indication: BREAST CANCER
     Route: 042
     Dates: start: 2010, end: 2010
  7. PANTOPRAZOLE [Concomitant]
     Route: 048
  8. SIMVAHEXAL [Concomitant]
     Route: 048
     Dates: start: 201109
  9. CALCILAC [Concomitant]
     Route: 065
  10. PREDNISOLON [Concomitant]
     Indication: GRANULOMATOSIS WITH POLYANGIITIS
     Route: 048
  11. FEMARA [Concomitant]
     Route: 048
     Dates: start: 2010
  12. CARMEN (GERMANY) [Concomitant]
     Indication: HYPERTENSION
     Route: 048
  13. VOTUM (GERMANY) [Concomitant]
     Indication: HYPERTENSION
     Route: 048

REACTIONS (1)
  - Progressive multifocal leukoencephalopathy [Recovering/Resolving]
